FAERS Safety Report 18009057 (Version 1)
Quarter: 2020Q3

REPORT INFORMATION
  Report Type: Spontaneous
  Country: US (occurrence: US)
  Receive Date: 20200710
  Receipt Date: 20200710
  Transmission Date: 20201103
  Serious: Yes (Hospitalization, Other)
  Sender: FDA-Public Use
  Company Number: US-SAOL THERAPEUTICS-2020SAO00041

PATIENT
  Age: 50 Year
  Sex: Female
  Weight: 56.24 kg

DRUGS (24)
  1. GABAPENTIN. [Concomitant]
     Active Substance: GABAPENTIN
     Dosage: 400 MG, 1X/DAY (1 CAPSULE AT BEDTIME)
     Dates: end: 20200904
  2. DOCUSATE SODIUM. [Concomitant]
     Active Substance: DOCUSATE SODIUM
     Dosage: 100 MG, AS NEEDED (9 A.M. AND 5 P.M.)
     Route: 048
  3. DEXILANT [Concomitant]
     Active Substance: DEXLANSOPRAZOLE
     Dosage: UNK, 1X/DAY
  4. AMITRIPTYLINE [Concomitant]
     Active Substance: AMITRIPTYLINE
     Dosage: 20 MG, 1X/DAY
     Route: 048
  5. GABAPENTIN. [Concomitant]
     Active Substance: GABAPENTIN
     Dosage: 1200 MG, 1X/DAY (AS 4 CAPSULES AT BEDTIME)
     Route: 048
  6. PAPAYA ENZTME [Concomitant]
     Dosage: 3 TABLETS, 1X/DAY
     Route: 048
  7. TOPIRAMATE. [Concomitant]
     Active Substance: TOPIRAMATE
     Dosage: 100 MG, 1X/DAY FOR 2 WEEKS AT BEDTIME
     Route: 048
  8. SINGULAIR [Concomitant]
     Active Substance: MONTELUKAST SODIUM
     Dosage: 10 MG, 1X/DAY
     Route: 048
  9. LIORESAL [Suspect]
     Active Substance: BACLOFEN
     Dosage: 247.14 ?G, \DAY
     Route: 037
     Dates: start: 20190904, end: 20200123
  10. ZYRTEC [Concomitant]
     Active Substance: CETIRIZINE HYDROCHLORIDE
     Dosage: 20 MG, AS NEEDED
     Route: 048
  11. TOPIRAMATE. [Concomitant]
     Active Substance: TOPIRAMATE
     Dosage: 50 MG, 1X/DAY FOR 2 WEEKS AT BEDTIME
     Route: 048
  12. GABAPENTIN. [Concomitant]
     Active Substance: GABAPENTIN
     Indication: NEURALGIA
     Dosage: 900 MG, 3X/DAY (300 MG CAPSULE AT 3 CAPSULES, ORALLY, 3X/DAY AT 8 AM,1 PM, 5 PM)
     Route: 048
  13. TEMAZEPAM. [Concomitant]
     Active Substance: TEMAZEPAM
     Dosage: 15 MG, 1X/DAY AT BEDTIME AS NEEDED
  14. VENLAFAXINE [Concomitant]
     Active Substance: VENLAFAXINE HYDROCHLORIDE
     Dosage: 75 MG, 3X/DAY
     Route: 048
  15. TOPIRAMATE. [Concomitant]
     Active Substance: TOPIRAMATE
     Dosage: 150 MG, 1X/DAY AT BEDTIME AS TOLERATED
     Route: 048
  16. TOPIRAMATE. [Concomitant]
     Active Substance: TOPIRAMATE
     Dosage: UNK
  17. ALPRAZOLAM. [Concomitant]
     Active Substance: ALPRAZOLAM
     Dosage: 0.25 MG, 3X/DAY AS NEEDED
     Route: 048
  18. LIORESAL [Suspect]
     Active Substance: BACLOFEN
     Dosage: 235.26 ?G, \DAY
     Route: 037
     Dates: end: 20190904
  19. ONDANSETRON [Concomitant]
     Active Substance: ONDANSETRON
     Dosage: 4 MG, 3X/DAY (EVERY 8 HOURS)
     Route: 048
  20. TIZANIDINE. [Concomitant]
     Active Substance: TIZANIDINE
     Dosage: 2 MG, UP TO 4X/DAY (EVERY 6 HOURS) AS NEEDED
     Route: 048
  21. LIORESAL [Suspect]
     Active Substance: BACLOFEN
     Indication: MUSCLE SPASTICITY
     Dosage: UNK ?G, \DAY
     Route: 037
     Dates: start: 20110819
  22. LIORESAL [Suspect]
     Active Substance: BACLOFEN
     Dosage: 254.87 ?G, \DAY
     Route: 037
     Dates: start: 20200123
  23. GABAPENTIN. [Concomitant]
     Active Substance: GABAPENTIN
     Indication: NEURALGIA
     Dosage: 800 MG, 3X/DAY (TWO 400 MG CAPSULES 3X/DAY AT 8 AM, 1PM, 5PM )
  24. GABAPENTIN. [Concomitant]
     Active Substance: GABAPENTIN
     Dosage: 800 MG, 4X/DAY (800 MG EVERY 6 HOURS AT 6AM, 12 PM, 6PM, 12 MIDNIGHT)
     Dates: start: 20200904

REACTIONS (7)
  - Muscular weakness [Unknown]
  - Gait disturbance [Unknown]
  - Overdose [Recovered/Resolved]
  - Device infusion issue [Unknown]
  - Complication associated with device [Unknown]
  - Somnolence [Recovering/Resolving]
  - Therapeutic response decreased [Not Recovered/Not Resolved]

NARRATIVE: CASE EVENT DATE: 20190110
